FAERS Safety Report 15353988 (Version 1)
Quarter: 2018Q3

REPORT INFORMATION
  Report Type: Report from Study
  Country: JP (occurrence: JP)
  Receive Date: 20180906
  Receipt Date: 20180906
  Transmission Date: 20181010
  Serious: Yes (Other)
  Sender: FDA-Public Use
  Company Number: JP-CONCORDIA PHARMACEUTICALS INC.-GSH201808-003140

PATIENT
  Age: 38 Year
  Sex: Female

DRUGS (18)
  1. ZONISAMIDE. [Suspect]
     Active Substance: ZONISAMIDE
     Indication: STATUS EPILEPTICUS
  2. CARBAMAZEPINE. [Suspect]
     Active Substance: CARBAMAZEPINE
     Indication: STATUS EPILEPTICUS
  3. STIRIPENTOL [Suspect]
     Active Substance: STIRIPENTOL
  4. IMMUNOGLOBULIN [Concomitant]
     Indication: INTRAVESICAL IMMUNOTHERAPY
     Route: 042
  5. GABAPENTIN. [Suspect]
     Active Substance: GABAPENTIN
     Indication: STATUS EPILEPTICUS
  6. METHYLPREDNISOLONE. [Concomitant]
     Active Substance: METHYLPREDNISOLONE
     Indication: INTRAVESICAL IMMUNOTHERAPY
     Route: 042
  7. VALPROIC ACID. [Suspect]
     Active Substance: VALPROIC ACID
     Indication: STATUS EPILEPTICUS
  8. STIRIPENTOL [Suspect]
     Active Substance: STIRIPENTOL
     Indication: STATUS EPILEPTICUS
  9. PROPOFOL. [Concomitant]
     Active Substance: PROPOFOL
     Indication: ANAESTHESIA
     Route: 042
  10. LEVETIRACETAM. [Suspect]
     Active Substance: LEVETIRACETAM
     Indication: STATUS EPILEPTICUS
  11. PHENOBARBITAL. [Suspect]
     Active Substance: PHENOBARBITAL
     Indication: STATUS EPILEPTICUS
  12. STIRIPENTOL [Suspect]
     Active Substance: STIRIPENTOL
  13. CLOBAZAM [Suspect]
     Active Substance: CLOBAZAM
     Indication: STATUS EPILEPTICUS
  14. THIOPENTAL [Concomitant]
     Active Substance: THIOPENTAL
     Indication: ANAESTHESIA
     Route: 042
  15. PHENYTOIN. [Suspect]
     Active Substance: PHENYTOIN
     Indication: STATUS EPILEPTICUS
  16. TOPIRAMATE. [Suspect]
     Active Substance: TOPIRAMATE
     Indication: STATUS EPILEPTICUS
  17. MIDAZOLAM [Concomitant]
     Active Substance: MIDAZOLAM HYDROCHLORIDE
     Indication: ANAESTHESIA
     Route: 042
  18. PLASMA EXCHANGE [Concomitant]
     Active Substance: ALBUMIN HUMAN
     Indication: INTRAVESICAL IMMUNOTHERAPY

REACTIONS (4)
  - Hepatitis [Unknown]
  - Toxic epidermal necrolysis [Unknown]
  - Eosinophilia [Unknown]
  - Pyrexia [Unknown]
